FAERS Safety Report 7209047-3 (Version None)
Quarter: 2011Q1

REPORT INFORMATION
  Report Type: 
  Country: None (occurrence: None)
  Receive Date: 20110104
  Receipt Date: 20081215
  Transmission Date: 20110831
  Serious: Yes (Other)
  Sender: FDA-Public Use
  Company Number: PHHY2008IN37342

PATIENT

DRUGS (1)
  1. ACLASTA [Suspect]
     Dosage: UNK

REACTIONS (1)
  - FRACTURE [None]
